FAERS Safety Report 20281588 (Version 1)
Quarter: 2022Q1

REPORT INFORMATION
  Report Type: Spontaneous
  Country: US (occurrence: None)
  Receive Date: 20220101
  Receipt Date: 20220101
  Transmission Date: 20220423
  Serious: Yes (Death)
  Sender: FDA-Public Use
  Company Number: None

PATIENT
  Age: 42 Year
  Sex: Female
  Weight: 125.3 kg

DRUGS (1)
  1. TOCILIZUMAB [Suspect]
     Active Substance: TOCILIZUMAB
     Indication: COVID-19
     Dosage: FREQUENCY : ONCE;?
     Route: 042
     Dates: start: 20211213, end: 20211213

REACTIONS (7)
  - Lung infiltration [None]
  - Sternal fracture [None]
  - Rib fracture [None]
  - Myoclonus [None]
  - Post procedural complication [None]
  - Brain death [None]
  - Unevaluable event [None]

NARRATIVE: CASE EVENT DATE: 20211228
